FAERS Safety Report 6832699-4 (Version None)
Quarter: 2010Q3

REPORT INFORMATION
  Report Type: 
  Country: None (occurrence: None)
  Receive Date: 20100712
  Receipt Date: 20070516
  Transmission Date: 20110219
  Serious: No
  Sender: FDA-Public Use
  Company Number: US-PFIZER INC-2007021116

PATIENT
  Sex: Female
  Weight: 79.4 kg

DRUGS (8)
  1. CHANTIX [Suspect]
     Indication: SMOKING CESSATION THERAPY
     Dates: start: 20070314, end: 20070315
  2. POTASSIUM [Concomitant]
     Indication: RESTLESS LEGS SYNDROME
  3. REQUIP [Concomitant]
     Indication: RESTLESS LEGS SYNDROME
  4. CYMBALTA [Concomitant]
  5. GLUCOPHAGE [Concomitant]
  6. AVANDIA [Concomitant]
     Indication: DIABETES MELLITUS
  7. ALBUTEROL [Concomitant]
  8. ALL OTHER THERAPEUTIC PRODUCTS [Concomitant]
     Dosage: EVERY NIGHT

REACTIONS (5)
  - DEHYDRATION [None]
  - MUSCLE SPASMS [None]
  - NERVOUSNESS [None]
  - NOCTURIA [None]
  - RESTLESS LEGS SYNDROME [None]
